FAERS Safety Report 9168165 (Version 2)
Quarter: 2013Q2

REPORT INFORMATION
  Report Type: Spontaneous
  Country: US (occurrence: US)
  Receive Date: 20130318
  Receipt Date: 20130507
  Transmission Date: 20140414
  Serious: Yes (Hospitalization, Other)
  Sender: FDA-Public Use
  Company Number: US-AMGEN-USASP2013016486

PATIENT
  Age: 62 Year
  Sex: Male
  Weight: 78.01 kg

DRUGS (12)
  1. PROLIA [Suspect]
     Indication: OSTEOPOROSIS
     Dosage: 60 MG, Q6MO
     Route: 058
     Dates: start: 20130222, end: 20130222
  2. ANDROGEL [Concomitant]
  3. DEXILANT [Concomitant]
  4. MAALOX                             /00082501/ [Concomitant]
  5. AVAPRO [Concomitant]
  6. DILTIAZEM [Concomitant]
  7. KLONOPIN [Concomitant]
  8. MECLIZINE                          /00072801/ [Concomitant]
  9. MAGNESIUM [Concomitant]
  10. NEBIVOLOL [Concomitant]
  11. VITAMIN D /00107901/ [Concomitant]
  12. ASA [Concomitant]

REACTIONS (2)
  - Pulmonary embolism [Unknown]
  - Deep vein thrombosis [Recovering/Resolving]
